FAERS Safety Report 5221251-2 (Version None)
Quarter: 2007Q1

REPORT INFORMATION
  Report Type: 
  Country: None (occurrence: None)
  Receive Date: 20070126
  Receipt Date: 20070115
  Transmission Date: 20070707
  Serious: Yes (Other)
  Sender: FDA-Public Use
  Company Number: BR-PFIZER INC-2006045121

PATIENT
  Sex: Female

DRUGS (3)
  1. DEPO-PROVERA [Suspect]
     Indication: CONTRACEPTION
     Route: 030
     Dates: start: 20060221, end: 20060221
  2. PERLUTAL [Concomitant]
  3. DESOBESI-M [Concomitant]
     Dates: start: 20060201

REACTIONS (3)
  - ABORTION SPONTANEOUS [None]
  - INAPPROPRIATE SCHEDULE OF DRUG ADMINISTRATION [None]
  - UNINTENDED PREGNANCY [None]
